FAERS Safety Report 7356184-9 (Version None)
Quarter: 2011Q1

REPORT INFORMATION
  Report Type: 
  Country: None (occurrence: None)
  Receive Date: 20110316
  Receipt Date: 20110311
  Transmission Date: 20110831
  Serious: Yes (Hospitalization, Other)
  Sender: FDA-Public Use
  Company Number: BR-PFIZER INC-BR-WYE-H12648209

PATIENT
  Age: 39 Year
  Sex: Female
  Weight: 61 kg

DRUGS (6)
  1. EFFEXOR XR [Suspect]
     Indication: PANIC DISORDER
     Dosage: 150 MG, UNK
     Route: 048
     Dates: start: 20110224
  2. VENLAFAXINE HCL [Suspect]
     Indication: PANIC DISORDER
     Dosage: 37.5 MG, 1X/DAY
     Route: 048
     Dates: start: 20091130, end: 20110201
  3. VENLAFAXINE HCL [Suspect]
     Dosage: 75 MG, 1X/DAY
     Route: 048
     Dates: start: 20110201, end: 20110208
  4. RIVOTRIL [Concomitant]
     Dosage: HALF TABLET OF 2MG, FREQUENCY UNKNOWN
     Dates: start: 20110101
  5. AROPAX [Concomitant]
     Indication: PANIC DISORDER
     Dosage: 20 MG, 1X/DAY
     Dates: start: 20070101
  6. FRONTAL [Concomitant]
     Dosage: 0.5 MG, UNK
     Dates: start: 20110120

REACTIONS (14)
  - NERVOUSNESS [None]
  - SOMNOLENCE [None]
  - DRUG INEFFECTIVE [None]
  - DIZZINESS [None]
  - DECREASED APPETITE [None]
  - IRRITABILITY [None]
  - ASTHENIA [None]
  - RETCHING [None]
  - WEIGHT DECREASED [None]
  - PANIC DISORDER [None]
  - FEELING ABNORMAL [None]
  - CONDITION AGGRAVATED [None]
  - FEELING HOT [None]
  - ANXIETY [None]
